FAERS Safety Report 9460933 (Version 3)
Quarter: 2013Q3

REPORT INFORMATION
  Report Type: Spontaneous
  Country: US (occurrence: US)
  Receive Date: 20130816
  Receipt Date: 20130906
  Transmission Date: 20140515
  Serious: Yes (Hospitalization)
  Sender: FDA-Public Use
  Company Number: US-BIOGENIDEC-2013BI072469

PATIENT
  Age: 31 Year
  Sex: Female
  Weight: 90 kg

DRUGS (11)
  1. TYSABRI [Suspect]
     Indication: MULTIPLE SCLEROSIS
     Route: 042
     Dates: start: 20100315, end: 20130408
  2. AMPYRA [Concomitant]
  3. BACLOFEN [Concomitant]
     Indication: MUSCULOSKELETAL STIFFNESS
  4. FLOMAX [Concomitant]
  5. GABAPENTIN [Concomitant]
  6. IBUPROFEN [Concomitant]
  7. MODAFINIL [Concomitant]
  8. MULTIVITAMIN [Concomitant]
  9. TRAMADOL [Concomitant]
  10. VALTREX [Concomitant]
  11. ZOLOFT [Concomitant]

REACTIONS (2)
  - Multiple sclerosis [Not Recovered/Not Resolved]
  - Multiple sclerosis relapse [Not Recovered/Not Resolved]
